FAERS Safety Report 12551478 (Version 4)
Quarter: 2016Q3

REPORT INFORMATION
  Report Type: Spontaneous
  Country: IT (occurrence: IT)
  Receive Date: 20160713
  Receipt Date: 20160802
  Transmission Date: 20161109
  Serious: Yes (Hospitalization)
  Sender: FDA-Public Use
  Company Number: IT-PFIZER INC-2016330484

PATIENT
  Age: 57 Year
  Sex: Male

DRUGS (7)
  1. DELTACORTENE - 25 MG COMPRESSE [Concomitant]
     Dosage: 25 MG, UNK
  2. CISPLATIN. [Suspect]
     Active Substance: CISPLATIN
     Indication: RICHTER^S SYNDROME
     Dosage: 200 MG, CYCLIC
     Dates: start: 20160419, end: 20160420
  3. CYTARABINE. [Suspect]
     Active Substance: CYTARABINE
     Indication: RICHTER^S SYNDROME
     Dosage: 4000 MG, TOTAL
     Route: 042
     Dates: start: 20160420, end: 20160420
  4. CORLENTOR [Concomitant]
     Active Substance: IVABRADINE HYDROCHLORIDE
     Dosage: 2.5 MG, UNK
  5. CARDIOASPIRIN [Concomitant]
     Active Substance: ASPIRIN
  6. NYSTATIN. [Concomitant]
     Active Substance: NYSTATIN
     Dosage: UNK
  7. DILATREND [Concomitant]
     Active Substance: CARVEDILOL
     Dosage: 12.5 MG, UNK

REACTIONS (3)
  - Acute kidney injury [Unknown]
  - Metabolic acidosis [Unknown]
  - Malaise [Unknown]

NARRATIVE: CASE EVENT DATE: 20160430
